FAERS Safety Report 6844095-4 (Version None)
Quarter: 2010Q3

REPORT INFORMATION
  Report Type: 
  Country: None (occurrence: None)
  Receive Date: 20100714
  Receipt Date: 20100714
  Transmission Date: 20110219
  Serious: Yes (Other)
  Sender: FDA-Public Use
  Company Number: None

PATIENT
  Age: 75 Year
  Sex: Female
  Weight: 74.8435 kg

DRUGS (1)
  1. FLEXERIL [Suspect]
     Indication: SHOULDER OPERATION
     Dosage: ONE-TWICE DAILY PO
     Route: 048
     Dates: start: 20100125, end: 20100620

REACTIONS (2)
  - IMPAIRED DRIVING ABILITY [None]
  - VISION BLURRED [None]
